FAERS Safety Report 5131669-4 (Version None)
Quarter: 2006Q4

REPORT INFORMATION
  Report Type: 
  Country: None (occurrence: None)
  Receive Date: 20061020
  Receipt Date: 20061011
  Transmission Date: 20070319
  Serious: Yes (Other)
  Sender: FDA-Public Use
  Company Number: JP-ABBOTT-06P-087-0346893-00

PATIENT
  Age: 57 Year
  Sex: Female
  Weight: 50 kg

DRUGS (3)
  1. CLARITHROMYCIN [Suspect]
     Indication: HELICOBACTER INFECTION
     Route: 048
     Dates: start: 20060912, end: 20060912
  2. AMOXICILLIN [Concomitant]
     Indication: HELICOBACTER INFECTION
     Route: 048
     Dates: start: 20060912, end: 20060912
  3. OMEPRAZOLE [Concomitant]
     Indication: HELICOBACTER INFECTION
     Route: 048
     Dates: start: 20060912, end: 20060912

REACTIONS (8)
  - ABDOMINAL PAIN UPPER [None]
  - ANGINA PECTORIS [None]
  - CHEST DISCOMFORT [None]
  - CRYING [None]
  - FEELING HOT [None]
  - HYPERTENSION [None]
  - LOSS OF CONSCIOUSNESS [None]
  - SINUS TACHYCARDIA [None]
